FAERS Safety Report 9257219 (Version 16)
Quarter: 2015Q4

REPORT INFORMATION
  Report Type: Report from Study
  Country: CA (occurrence: CA)
  Receive Date: 20130426
  Receipt Date: 20151010
  Transmission Date: 20160305
  Serious: Yes (Other)
  Sender: FDA-Public Use
  Company Number: PHHY2013CA016378

PATIENT
  Sex: Male

DRUGS (2)
  1. APO-HYDRO [Concomitant]
     Active Substance: HYDROCHLOROTHIAZIDE
     Indication: PRODUCT USED FOR UNKNOWN INDICATION
     Dosage: 12.5 MG, QD (FOR A MONTH)
     Route: 065
  2. SANDOSTATIN LAR DEPOT [Suspect]
     Active Substance: OCTREOTIDE ACETATE
     Indication: CARCINOID SYNDROME
     Dosage: 30 MG, QMO (EVERY FOUR WEEKS)
     Route: 030
     Dates: start: 20130115

REACTIONS (8)
  - Blood pressure increased [Unknown]
  - Influenza [Unknown]
  - Body temperature decreased [Unknown]
  - Discomfort [Unknown]
  - Malaise [Unknown]
  - Lung infection [Unknown]
  - Respiratory rate increased [Unknown]
  - Pyrexia [Unknown]
